FAERS Safety Report 9869356 (Version 1)
Quarter: 2014Q1

REPORT INFORMATION
  Report Type: Spontaneous
  Country: DE (occurrence: DE)
  Receive Date: 20140205
  Receipt Date: 20140205
  Transmission Date: 20141002
  Serious: Yes (Life-Threatening, Hospitalization, Disabling)
  Sender: FDA-Public Use
  Company Number: DE-JNJFOC-20140201236

PATIENT
  Age: 83 Year
  Sex: Female
  Weight: 60 kg

DRUGS (2)
  1. XARELTO [Suspect]
     Indication: CEREBROVASCULAR ACCIDENT PROPHYLAXIS
     Route: 048
     Dates: end: 20131020
  2. XARELTO [Suspect]
     Indication: ATRIAL FIBRILLATION
     Route: 048
     Dates: end: 20131020

REACTIONS (3)
  - Colitis ischaemic [Unknown]
  - Megacolon [Unknown]
  - Peritonitis [Unknown]
